FAERS Safety Report 22351671 (Version 1)
Quarter: 2023Q2

REPORT INFORMATION
  Report Type: Spontaneous
  Country: US (occurrence: None)
  Receive Date: 20230522
  Receipt Date: 20230522
  Transmission Date: 20230722
  Serious: No
  Sender: FDA-Public Use
  Company Number: None

PATIENT
  Sex: Female

DRUGS (1)
  1. ENBREL [Suspect]
     Active Substance: ETANERCEPT
     Indication: Rheumatoid arthritis
     Dosage: 50MG EVERY 7 DAYS SUB-Q?
     Route: 058
     Dates: start: 202208

REACTIONS (8)
  - Injection site swelling [None]
  - Injection site erythema [None]
  - Injection site bruising [None]
  - Drug delivery system malfunction [None]
  - Injection site discharge [None]
  - Incorrect dose administered by device [None]
  - Oropharyngeal pain [None]
  - Sinusitis [None]
